FAERS Safety Report 6116958-9 (Version None)
Quarter: 2009Q1

REPORT INFORMATION
  Report Type: 
  Country: None (occurrence: None)
  Receive Date: 20090314
  Receipt Date: 20081229
  Transmission Date: 20090719
  Serious: No
  Sender: FDA-Public Use
  Company Number: US-ABBOTT-08P-163-0495237-00

PATIENT
  Sex: Female
  Weight: 90.8 kg

DRUGS (11)
  1. HUMIRA [Suspect]
     Indication: CROHN'S DISEASE
     Dates: start: 20081101
  2. PREDNISONE [Concomitant]
     Indication: DRUG USE FOR UNKNOWN INDICATION
     Route: 048
  3. PREDNISONE [Concomitant]
     Route: 054
  4. ENDOCORT EC [Concomitant]
     Indication: DRUG USE FOR UNKNOWN INDICATION
  5. COLESTIPOL HYDROCHLORIDE [Concomitant]
     Indication: DRUG USE FOR UNKNOWN INDICATION
  6. LISINOPRIL [Concomitant]
     Indication: BLOOD PRESSURE
  7. MAGNESIUM SULFATE [Concomitant]
     Indication: DRUG USE FOR UNKNOWN INDICATION
     Route: 048
  8. POTASSIUM CHLORIDE [Concomitant]
     Indication: DRUG USE FOR UNKNOWN INDICATION
  9. DICYCLOMINE [Concomitant]
     Indication: DRUG USE FOR UNKNOWN INDICATION
  10. PRILOSEC [Concomitant]
     Indication: DRUG USE FOR UNKNOWN INDICATION
  11. AMBIEN [Concomitant]
     Indication: DRUG USE FOR UNKNOWN INDICATION

REACTIONS (3)
  - COUGH [None]
  - RESPIRATORY TRACT CONGESTION [None]
  - SENSATION OF FOREIGN BODY [None]
